FAERS Safety Report 10698340 (Version 3)
Quarter: 2015Q2

REPORT INFORMATION
  Report Type: Spontaneous
  Country: US (occurrence: US)
  Receive Date: 20150108
  Receipt Date: 20150401
  Transmission Date: 20150821
  Serious: Yes (Death, Hospitalization, Other)
  Sender: FDA-Public Use
  Company Number: US-009507513-1501USA000663

PATIENT
  Sex: Female
  Weight: 68.27 kg

DRUGS (1)
  1. JANUVIA [Suspect]
     Active Substance: SITAGLIPTIN PHOSPHATE
     Indication: TYPE 2 DIABETES MELLITUS
     Dosage: 100 MG, QD
     Route: 048
     Dates: start: 20120312, end: 201304

REACTIONS (49)
  - Atrophy [Unknown]
  - Vocal cord paresis [Unknown]
  - Joint swelling [Unknown]
  - Diarrhoea [Unknown]
  - Drug hypersensitivity [Unknown]
  - Sepsis syndrome [Unknown]
  - Urosepsis [Fatal]
  - Vitamin D deficiency [Unknown]
  - Haematemesis [Unknown]
  - Cellulitis [Not Recovered/Not Resolved]
  - Metastases to peritoneum [Unknown]
  - Hypotension [Unknown]
  - Lymphadenopathy [Unknown]
  - Incisional drainage [Unknown]
  - Hypercalcaemia [Unknown]
  - Generalised oedema [Unknown]
  - Deep vein thrombosis [Unknown]
  - Adenocarcinoma pancreas [Fatal]
  - Nephropathy [Unknown]
  - Urinary tract infection [Recovered/Resolved]
  - Dehydration [Unknown]
  - Adrenal disorder [Unknown]
  - Upper gastrointestinal haemorrhage [Unknown]
  - Spinal osteoarthritis [Unknown]
  - Anaemia [Fatal]
  - Clostridium difficile infection [Unknown]
  - Renal cyst [Unknown]
  - Biopsy pancreas [Unknown]
  - Arteriosclerosis coronary artery [Unknown]
  - Fall [Unknown]
  - Type 1 diabetes mellitus [Unknown]
  - Urinary tract infection [Unknown]
  - Acute kidney injury [Fatal]
  - Vitamin B complex deficiency [Unknown]
  - Decubitus ulcer [Unknown]
  - Oedema peripheral [Unknown]
  - Thrombocytopenia [Unknown]
  - Aortic arteriosclerosis [Unknown]
  - Osteoarthritis [Unknown]
  - Pleural effusion [Unknown]
  - Bile duct stent insertion [Unknown]
  - Cardiomegaly [Unknown]
  - Asthenia [Unknown]
  - Mesenteric vein thrombosis [Not Recovered/Not Resolved]
  - Metastases to lymph nodes [Unknown]
  - Cellulitis staphylococcal [Unknown]
  - Atelectasis [Unknown]
  - Ascites [Unknown]
  - Pneumobilia [Unknown]

NARRATIVE: CASE EVENT DATE: 201204
